FAERS Safety Report 6424329-0 (Version None)
Quarter: 2009Q4

REPORT INFORMATION
  Report Type: 
  Country: None (occurrence: None)
  Receive Date: 20091103
  Receipt Date: 20091027
  Transmission Date: 20100525
  Serious: Yes (Hospitalization)
  Sender: FDA-Public Use
  Company Number: US-BIOGENIDEC-2009BI018728

PATIENT
  Age: 40 Year
  Sex: Female

DRUGS (3)
  1. TYSABRI [Suspect]
     Indication: MULTIPLE SCLEROSIS
     Route: 042
     Dates: start: 20090529
  2. KEPPRA [Concomitant]
     Indication: PARTIAL SEIZURES
     Route: 048
  3. DILANTIN [Concomitant]
     Indication: PARTIAL SEIZURES
     Route: 048

REACTIONS (1)
  - STATUS EPILEPTICUS [None]
